FAERS Safety Report 23798051 (Version 1)
Quarter: 2024Q2

REPORT INFORMATION
  Report Type: Spontaneous
  Country: US (occurrence: US)
  Receive Date: 20240430
  Receipt Date: 20240430
  Transmission Date: 20240716
  Serious: Yes (Other)
  Sender: FDA-Public Use
  Company Number: US-AUROBINDO-AUR-APL-2024-019022

PATIENT
  Age: 75 Year
  Sex: Male

DRUGS (3)
  1. NITROGLYCERIN [Suspect]
     Active Substance: NITROGLYCERIN
     Indication: Chest discomfort
     Dosage: UNK
     Route: 060
  2. ASPIRIN [Suspect]
     Active Substance: ASPIRIN
     Indication: Chest discomfort
     Dosage: UNK
     Route: 065
  3. MORPHINE [Suspect]
     Active Substance: MORPHINE
     Indication: Chest discomfort
     Dosage: UNK
     Route: 065

REACTIONS (1)
  - Drug ineffective [Unknown]
